FAERS Safety Report 8541758-X (Version None)
Quarter: 2012Q3

REPORT INFORMATION
  Report Type: 
  Country: None (occurrence: None)
  Receive Date: 20120726
  Receipt Date: 20110906
  Transmission Date: 20120928
  Serious: No
  Sender: FDA-Public Use
  Company Number: US-ASTRAZENECA-2011SE53339

PATIENT
  Age: 46 Year
  Sex: Male
  Weight: 104.3 kg

DRUGS (6)
  1. AMLODIPINE [Concomitant]
     Indication: HYPERTENSION
  2. LISINOPRIL [Concomitant]
     Indication: HYPERTENSION
  3. SEROQUEL XR [Suspect]
     Indication: DEPRESSION
     Route: 048
     Dates: start: 20110301, end: 20110501
  4. CYMBALTA [Concomitant]
     Indication: PAIN
  5. GABAPENTIN [Concomitant]
     Indication: NERVE INJURY
  6. HALDOL [Concomitant]
     Indication: HALLUCINATION

REACTIONS (4)
  - INSOMNIA [None]
  - SOMNOLENCE [None]
  - DRUG DOSE OMISSION [None]
  - DEPRESSION [None]
